FAERS Safety Report 6837550-4 (Version None)
Quarter: 2010Q3

REPORT INFORMATION
  Report Type: 
  Country: None (occurrence: None)
  Receive Date: 20100713
  Receipt Date: 20070516
  Transmission Date: 20110219
  Serious: No
  Sender: FDA-Public Use
  Company Number: US-PFIZER INC-2007040423

PATIENT
  Sex: Female
  Weight: 62.272 kg

DRUGS (7)
  1. CHANTIX [Suspect]
     Indication: SMOKING CESSATION THERAPY
     Dates: start: 20070429
  2. ACETYLSALICYLIC ACID [Concomitant]
  3. ATENOLOL [Concomitant]
     Indication: HYPERTENSION
  4. LEVOXYL [Concomitant]
     Indication: THYROID DISORDER
  5. FLUOXETINE HCL [Concomitant]
  6. ZOCOR [Concomitant]
  7. PREMARIN [Concomitant]

REACTIONS (1)
  - SOMNOLENCE [None]
